FAERS Safety Report 21719305 (Version 1)
Quarter: 2022Q4

REPORT INFORMATION
  Report Type: Spontaneous
  Country: DK (occurrence: DK)
  Receive Date: 20221213
  Receipt Date: 20221213
  Transmission Date: 20230113
  Serious: Yes (Hospitalization, Other)
  Sender: FDA-Public Use
  Company Number: None

PATIENT
  Age: 52 Year
  Sex: Female

DRUGS (1)
  1. OPDIVO [Suspect]
     Active Substance: NIVOLUMAB
     Indication: Melanoma recurrent
     Dosage: STRENGTH: UNKNOWN?DOSE: UNKNOWN
     Dates: start: 20200430, end: 20200812

REACTIONS (4)
  - Weight decreased [Unknown]
  - Abdominal pain [Unknown]
  - Immune-mediated enterocolitis [Recovered/Resolved]
  - Diarrhoea [Not Recovered/Not Resolved]

NARRATIVE: CASE EVENT DATE: 20200601
